FAERS Safety Report 10052774 (Version 4)
Quarter: 2014Q2

REPORT INFORMATION
  Report Type: Report from Study
  Country: US (occurrence: US)
  Receive Date: 20140402
  Receipt Date: 20140512
  Transmission Date: 20141212
  Serious: Yes (Other)
  Sender: FDA-Public Use
  Company Number: US-SA-2014SA037927

PATIENT
  Age: 56 Year
  Sex: Female

DRUGS (13)
  1. LANTUS SOLOSTAR [Suspect]
     Indication: DIABETES MELLITUS
     Dosage: DOSE:15 UNIT(S)
     Route: 065
     Dates: start: 20130221
  2. SOLOSTAR [Concomitant]
     Indication: DEVICE THERAPY
     Dates: start: 201302
  3. TRAZODONE [Concomitant]
     Indication: SLEEP DISORDER
  4. SERTRALINE [Concomitant]
     Indication: NERVOUS SYSTEM DISORDER
  5. AMITRIPTYLINE [Concomitant]
     Indication: SLEEP DISORDER
     Dosage: 75 MG/1/2 AT NIGHT
  6. METFORMIN [Concomitant]
     Indication: DIABETES MELLITUS
  7. TRAMADOL [Concomitant]
     Indication: PAIN
     Dosage: 1 EVERY 12 HOURS
  8. SIMVASTATIN [Concomitant]
     Indication: BLOOD CHOLESTEROL INCREASED
     Dosage: EVENING
  9. NEURONTIN [Concomitant]
     Indication: NEUROPATHY PERIPHERAL
     Dosage: 2 OR 3 TIMES DAILY
  10. VERAPAMIL [Concomitant]
     Indication: HYPERTENSION
  11. TRIAMCINOLONE [Concomitant]
     Indication: NEUROPATHY PERIPHERAL
  12. LIDOCAINE [Concomitant]
     Indication: NEUROPATHY PERIPHERAL
  13. NOVOLOG [Concomitant]
     Dosage: CHECK SUGAR 4 TIMES

REACTIONS (1)
  - Cerebrovascular accident [Recovered/Resolved]
